FAERS Safety Report 12159799 (Version 1)
Quarter: 2016Q1

REPORT INFORMATION
  Report Type: Spontaneous
  Country: US (occurrence: US)
  Receive Date: 20160308
  Receipt Date: 20160308
  Transmission Date: 20160526
  Serious: Yes (Other)
  Sender: FDA-Public Use
  Company Number: US-ASTRAZENECA-2016SE22379

PATIENT
  Sex: Female
  Weight: 99.8 kg

DRUGS (1)
  1. SYMBICORT [Suspect]
     Active Substance: BUDESONIDE\FORMOTEROL FUMARATE DIHYDRATE
     Indication: ASTHMA
     Dosage: 160/4.5 MCG, TWO PUFFS TWICE A DAY
     Route: 055

REACTIONS (7)
  - Dyspnoea [Unknown]
  - Visual impairment [Unknown]
  - Bronchitis [Unknown]
  - Vision blurred [Unknown]
  - Malaise [Unknown]
  - Bone disorder [Unknown]
  - Bone pain [Unknown]
